FAERS Safety Report 16058806 (Version 2)
Quarter: 2019Q1

REPORT INFORMATION
  Report Type: Spontaneous
  Country: PL (occurrence: PL)
  Receive Date: 20190311
  Receipt Date: 20190319
  Transmission Date: 20190418
  Serious: Yes (Other)
  Sender: FDA-Public Use
  Company Number: PL-GILEAD-2019-0395562

PATIENT
  Age: 63 Year
  Sex: Male

DRUGS (3)
  1. INSULIN [Concomitant]
     Active Substance: INSULIN NOS
     Indication: DIABETES MELLITUS
     Dosage: UNK
     Dates: start: 2000
  2. EPCLUSA [Suspect]
     Active Substance: SOFOSBUVIR\VELPATASVIR
     Indication: CHRONIC HEPATITIS C
     Dosage: UNK
     Route: 065
     Dates: start: 201809, end: 201812
  3. FOLFOX-4 [Concomitant]
     Active Substance: FLUOROURACIL\LEUCOVORIN CALCIUM\OXALIPLATIN
     Indication: COLORECTAL CANCER
     Dosage: UNK
     Dates: start: 20180714

REACTIONS (1)
  - Treatment failure [Unknown]

NARRATIVE: CASE EVENT DATE: 20190110
